FAERS Safety Report 6413409 (Version 32)
Quarter: 2014Q3

REPORT INFORMATION
  Report Type: Spontaneous
  Country: US (occurrence: US)
  Receive Date: 20070914
  Receipt Date: 20140711
  Transmission Date: 20150326
  Serious: Yes (Hospitalization, Other)
  Sender: FDA-Public Use
  Company Number: PHEH2007US12178

PATIENT
  Age: 58 Year
  Sex: Male
  Weight: 78.91 kg

DRUGS (92)
  1. DURAGESIC [Concomitant]
     Active Substance: FENTANYL
     Dosage: 200 MG
     Dates: start: 20040519
  2. TENORMIN [Concomitant]
     Active Substance: ATENOLOL
  3. LANTUS [Concomitant]
     Active Substance: INSULIN GLARGINE
  4. SULFAMETHOXAZOLE-TRIMETHOPRIM (SMZ) [Concomitant]
     Active Substance: SULFAMETHOXAZOLE\TRIMETHOPRIM
  5. METHADONE [Concomitant]
     Active Substance: METHADONE HYDROCHLORIDE
  6. DURAMORPH [Concomitant]
     Active Substance: MORPHINE SULFATE
  7. DURAGESIC [Concomitant]
     Active Substance: FENTANYL
     Dates: end: 20040519
  8. RADIATION THERAPY [Concomitant]
     Active Substance: RADIATION THERAPY
  9. TIZANIDINE [Concomitant]
     Active Substance: TIZANIDINE
  10. THALIDOMIDE [Concomitant]
     Active Substance: THALIDOMIDE
     Dosage: 200 MG
     Dates: start: 20040617
  11. AMBIEN [Concomitant]
     Active Substance: ZOLPIDEM TARTRATE
  12. MIRTAZAPINE. [Concomitant]
     Active Substance: MIRTAZAPINE
  13. ATIVAN [Concomitant]
     Active Substance: LORAZEPAM
  14. MAALOX ANTACID [Concomitant]
     Active Substance: ALUMINUM HYDROXIDE\DIMETHICONE\MAGNESIUM HYDROXIDE
  15. MICRO-K [Concomitant]
     Active Substance: POTASSIUM CHLORIDE
  16. PERCOCET [Concomitant]
     Active Substance: ACETAMINOPHEN\OXYCODONE HYDROCHLORIDE
     Dosage: 1 DF, PRN
  17. CENTRUM SILVER [Concomitant]
     Active Substance: VITAMINS
  18. MSIR [Concomitant]
     Active Substance: MORPHINE SULFATE
  19. LOVENOX [Concomitant]
     Active Substance: ENOXAPARIN SODIUM
  20. LISINOPRIL. [Concomitant]
     Active Substance: LISINOPRIL
  21. NPH INSULIN [Concomitant]
     Active Substance: INSULIN BEEF
  22. FENTANYL. [Concomitant]
     Active Substance: FENTANYL
  23. BACTRIM [Concomitant]
     Active Substance: SULFAMETHOXAZOLE\TRIMETHOPRIM
  24. MAXIPIME [Concomitant]
     Active Substance: CEFEPIME HYDROCHLORIDE
  25. GLIPIZIDE. [Concomitant]
     Active Substance: GLIPIZIDE
  26. REGLAN [Concomitant]
     Active Substance: METOCLOPRAMIDE HYDROCHLORIDE
  27. CHEMOTHERAPEUTICS NOS [Concomitant]
     Active Substance: UNSPECIFIED INGREDIENT
  28. PIOGLITAZONE [Concomitant]
     Active Substance: PIOGLITAZONE
  29. DEXAMETHASONE. [Concomitant]
     Active Substance: DEXAMETHASONE
     Dosage: 4 MG, Q6H
     Dates: start: 20040519
  30. DILAUDID [Concomitant]
     Active Substance: HYDROMORPHONE HYDROCHLORIDE
  31. FLUOXETINE [Concomitant]
     Active Substance: FLUOXETINE\FLUOXETINE HYDROCHLORIDE
  32. ACYCLOVIR. [Concomitant]
     Active Substance: ACYCLOVIR
  33. NAPROXEN. [Concomitant]
     Active Substance: NAPROXEN
  34. LEVAQUIN [Concomitant]
     Active Substance: LEVOFLOXACIN
  35. BENADRYL ^ACHE^ [Concomitant]
     Active Substance: DIPHENHYDRAMINE HYDROCHLORIDE
  36. CATHFLO ACTIVASE [Concomitant]
     Active Substance: ALTEPLASE
  37. ZOFRAN [Concomitant]
     Active Substance: ONDANSETRON HYDROCHLORIDE
  38. MS CONTIN [Concomitant]
     Active Substance: MORPHINE SULFATE
  39. LACTULOSE. [Concomitant]
     Active Substance: LACTULOSE
  40. ASTRAMORPH PF [Concomitant]
     Active Substance: MORPHINE SULFATE
  41. MIRALAX [Concomitant]
     Active Substance: POLYETHYLENE GLYCOL 3350
  42. ATENOLOL. [Concomitant]
     Active Substance: ATENOLOL
  43. PROTONIX [Concomitant]
     Active Substance: PANTOPRAZOLE SODIUM
  44. ACTOS [Concomitant]
     Active Substance: PIOGLITAZONE HYDROCHLORIDE
     Dosage: 15 MG, QD
  45. HYDROCODONE BIT/APAP [Concomitant]
     Active Substance: ACETAMINOPHEN\HYDROCODONE BITARTRATE
  46. AMOXICILLIN. [Concomitant]
     Active Substance: AMOXICILLIN
  47. OMEGA 3 [Concomitant]
     Active Substance: OMEGA-3 FATTY ACIDS
  48. PREDNISONE. [Concomitant]
     Active Substance: PREDNISONE
  49. NOVOLOG [Concomitant]
     Active Substance: INSULIN ASPART
  50. TYLENOL [Concomitant]
     Active Substance: ACETAMINOPHEN
  51. ALKERAN [Suspect]
     Active Substance: MELPHALAN
  52. OXYCONTIN [Concomitant]
     Active Substance: OXYCODONE HYDROCHLORIDE
     Dosage: 20 MG, BID
     Dates: start: 20040409
  53. CALCIUM CARBONATE W/VITAMIN D NOS [Concomitant]
     Active Substance: CALCIUM CARBONATE\VITAMIN D
  54. ZESTRIL [Concomitant]
     Active Substance: LISINOPRIL
  55. LIDODERM [Concomitant]
     Active Substance: LIDOCAINE
  56. DULCOLAX [Concomitant]
     Active Substance: BISACODYL OR DOCUSATE SODIUM
  57. SENOKOT [Concomitant]
     Active Substance: SENNOSIDES
  58. GLYBURIDE. [Concomitant]
     Active Substance: GLYBURIDE
  59. DEXAMETHASONE. [Concomitant]
     Active Substance: DEXAMETHASONE
     Dosage: 4 MG, Q6H
     Dates: end: 20040519
  60. RIMANTADINE [Concomitant]
     Active Substance: RIMANTADINE HYDROCHLORIDE
  61. FLUTICASONE [Concomitant]
     Active Substance: FLUTICASONE\FLUTICASONE PROPIONATE
  62. GABAPENTIN. [Concomitant]
     Active Substance: GABAPENTIN
  63. PENICILLIN ^GRUNENTHAL^ [Concomitant]
  64. ALLOPURINOL. [Concomitant]
     Active Substance: ALLOPURINOL
  65. ZOMETA [Suspect]
     Active Substance: ZOLEDRONIC ACID
     Indication: PLASMA CELL MYELOMA
     Dosage: 4 MG
     Route: 042
     Dates: start: 20050315, end: 200706
  66. INSULIN HUMAN [Concomitant]
     Active Substance: INSULIN HUMAN
  67. NEURONTIN [Concomitant]
     Active Substance: GABAPENTIN
  68. COLACE [Concomitant]
     Active Substance: DOCUSATE SODIUM
  69. PRILOSEC [Concomitant]
     Active Substance: OMEPRAZOLE MAGNESIUM
  70. LIORESAL [Concomitant]
     Active Substance: BACLOFEN
  71. ZANTAC [Concomitant]
     Active Substance: RANITIDINE HYDROCHLORIDE
  72. ZANAFLEX [Concomitant]
     Active Substance: TIZANIDINE HYDROCHLORIDE
  73. SENNA [Concomitant]
     Active Substance: SENNA LEAF\SENNOSIDES\SENNOSIDES A AND B
  74. ACTIQ [Concomitant]
     Active Substance: FENTANYL CITRATE
  75. MORPHINE [Concomitant]
     Active Substance: MORPHINE
  76. ENALAPRIL [Concomitant]
     Active Substance: ENALAPRIL
  77. DIFLUCAN [Concomitant]
     Active Substance: FLUCONAZOLE
  78. LOPERAMIDE [Concomitant]
     Active Substance: LOPERAMIDE
  79. MAGNESIUM SULFATE [Concomitant]
     Active Substance: MAGNESIUM SULFATE
  80. GLUCOPHAGE [Concomitant]
     Active Substance: METFORMIN HYDROCHLORIDE
  81. VITAMINS [Concomitant]
     Active Substance: VITAMINS
  82. RADIOTHERAPY [Concomitant]
     Active Substance: RADIATION THERAPY
     Dates: start: 20040419, end: 200405
  83. VITAMIN B COMPLEX [Concomitant]
     Active Substance: CYANOCOBALAMIN\DEXPANTHENOL\NIACINAMIDE\PYRIDOXINE HYDROCHLORIDE\RIBOFLAVIN 5^-PHOSPHATE SODIUM\THIAMINE HYDROCHLORIDE\VITAMIN B COMPLEX
  84. BACLOFEN. [Concomitant]
     Active Substance: BACLOFEN
  85. METFORMIN [Concomitant]
     Active Substance: METFORMIN HYDROCHLORIDE
     Dosage: 1500 MG, BID
  86. ROXANOL [Concomitant]
     Active Substance: MORPHINE SULFATE
  87. PEPCID [Concomitant]
     Active Substance: FAMOTIDINE
  88. FLEXERIL [Concomitant]
     Active Substance: CYCLOBENZAPRINE HYDROCHLORIDE
  89. INSULIN GLARGINE [Concomitant]
     Active Substance: INSULIN GLARGINE
  90. PRAVASTATIN [Concomitant]
     Active Substance: PRAVASTATIN\PRAVASTATIN SODIUM
  91. CHLORHEXIDINE [Concomitant]
     Active Substance: CHLORHEXIDINE
  92. FLAGYL [Concomitant]
     Active Substance: METRONIDAZOLE\METRONIDAZOLE HYDROCHLORIDE

REACTIONS (121)
  - Myelitis transverse [Unknown]
  - Second primary malignancy [Unknown]
  - Neuralgia [Unknown]
  - Balance disorder [Unknown]
  - Hypotension [Unknown]
  - VIIth nerve paralysis [Unknown]
  - Mitral valve incompetence [Unknown]
  - Myalgia [Unknown]
  - Prostate cancer [Unknown]
  - Spondylitis [Unknown]
  - Myofascial pain syndrome [Unknown]
  - Mucosal inflammation [Unknown]
  - Pneumonia [Unknown]
  - Diverticulum [Unknown]
  - Nephrogenic anaemia [Unknown]
  - Diabetic neuropathy [Unknown]
  - Aortic valve incompetence [Unknown]
  - Disturbance in attention [Unknown]
  - Fall [Unknown]
  - Paraesthesia [Unknown]
  - Arthralgia [Unknown]
  - Sciatica [Unknown]
  - Intervertebral disc degeneration [Unknown]
  - Epstein-Barr virus antibody positive [Unknown]
  - Hiatus hernia [Unknown]
  - Hypovolaemia [Unknown]
  - Burning sensation [Unknown]
  - Pulmonary embolism [Unknown]
  - Chest pain [Unknown]
  - Bone cyst [Unknown]
  - Pathological fracture [Unknown]
  - Life expectancy shortened [Unknown]
  - Post laminectomy syndrome [Unknown]
  - Neutrophil count decreased [Unknown]
  - Renal failure [Unknown]
  - Rash pruritic [Unknown]
  - Osteoporosis [Unknown]
  - Intervertebral disc protrusion [Unknown]
  - Light chain analysis increased [Unknown]
  - Glaucoma [Unknown]
  - Urosepsis [Unknown]
  - Cardiomegaly [Unknown]
  - Renal failure chronic [Unknown]
  - Renal neoplasm [Unknown]
  - Dyspnoea [Unknown]
  - Acute respiratory failure [Unknown]
  - Angina pectoris [Unknown]
  - Essential tremor [Unknown]
  - Supraventricular extrasystoles [Unknown]
  - Road traffic accident [Unknown]
  - Erectile dysfunction [Unknown]
  - Dyspepsia [Unknown]
  - Muscle spasms [Unknown]
  - Amnesia [Unknown]
  - Aortic calcification [Unknown]
  - Nasopharyngitis [Unknown]
  - Pleural fibrosis [Unknown]
  - Beta 2 microglobulin increased [Unknown]
  - Renal mass [Unknown]
  - Upper motor neurone lesion [Unknown]
  - Urinary tract infection [Unknown]
  - Dehydration [Unknown]
  - Delirium [Recovered/Resolved]
  - Mood swings [Unknown]
  - Flank pain [Unknown]
  - Dizziness [Unknown]
  - Spinal compression fracture [Unknown]
  - Osteolysis [Unknown]
  - Deformity [Unknown]
  - Emotional distress [Unknown]
  - Arthropathy [Unknown]
  - Depression [Unknown]
  - Toxoplasma serology positive [Unknown]
  - Hepatic steatosis [Unknown]
  - Diarrhoea [Unknown]
  - Pain in extremity [Unknown]
  - Mental status changes [Unknown]
  - Bone loss [Unknown]
  - Plasma cell myeloma in remission [Recovering/Resolving]
  - Hypoaesthesia oral [Unknown]
  - Dyspnoea paroxysmal nocturnal [Unknown]
  - Tooth abscess [Unknown]
  - Renal cyst [Unknown]
  - Aortic arteriosclerosis [Unknown]
  - Pain [Unknown]
  - Hypophagia [Unknown]
  - Anhedonia [Unknown]
  - Inguinal hernia [Unknown]
  - White blood cell count decreased [Unknown]
  - Failure to thrive [Unknown]
  - Scrotal irritation [Unknown]
  - Spinal column stenosis [Unknown]
  - Osteoarthritis [Unknown]
  - Fatigue [Unknown]
  - Infection [Unknown]
  - Herpes simplex serology positive [Unknown]
  - Gait disturbance [Unknown]
  - Renal osteodystrophy [Unknown]
  - Thrombocytopenia [Unknown]
  - Scoliosis [Unknown]
  - Pain in jaw [Unknown]
  - Bone lesion [Unknown]
  - Asthenia [Unknown]
  - Osteosclerosis [Unknown]
  - Lacunar infarction [Unknown]
  - Osteonecrosis of jaw [Not Recovered/Not Resolved]
  - Discomfort [Unknown]
  - Anxiety [Unknown]
  - Injury [Unknown]
  - Exposed bone in jaw [Unknown]
  - Haematochezia [Unknown]
  - Decreased appetite [Unknown]
  - Dysuria [Unknown]
  - Exostosis [Unknown]
  - Cough [Unknown]
  - Metabolic acidosis [Unknown]
  - Arteriosclerosis [Unknown]
  - Dysarthria [Unknown]
  - Chest discomfort [Unknown]
  - Spinal osteoarthritis [Unknown]
  - Hypercholesterolaemia [Unknown]

NARRATIVE: CASE EVENT DATE: 20050507
